FAERS Safety Report 21587300 (Version 2)
Quarter: 2023Q1

REPORT INFORMATION
  Report Type: Spontaneous
  Country: SA (occurrence: SA)
  Receive Date: 20221114
  Receipt Date: 20230112
  Transmission Date: 20230418
  Serious: Yes (Other)
  Sender: FDA-Public Use
  Company Number: SA-002147023-NVSC2022SA253939

PATIENT
  Age: 28 Year
  Sex: Female

DRUGS (1)
  1. ADAKVEO [Suspect]
     Active Substance: CRIZANLIZUMAB-TMCA
     Indication: Product used for unknown indication
     Dosage: 185 MG/KG
     Route: 042
     Dates: start: 20220105, end: 20220105

REACTIONS (1)
  - Cutaneous vasculitis [Unknown]

NARRATIVE: CASE EVENT DATE: 20220901
